FAERS Safety Report 23705233 (Version 1)
Quarter: 2024Q2

REPORT INFORMATION
  Report Type: Spontaneous
  Country: DE (occurrence: DE)
  Receive Date: 20240404
  Receipt Date: 20240404
  Transmission Date: 20240715
  Serious: Yes (Other)
  Sender: FDA-Public Use
  Company Number: DE-AMGEN-DEUSP2024063872

PATIENT
  Age: 53 Year
  Sex: Female

DRUGS (1)
  1. XGEVA [Suspect]
     Active Substance: DENOSUMAB
     Indication: Breast cancer
     Dosage: UNK, Q6MO
     Route: 065

REACTIONS (3)
  - Bone sequestrum [Recovered/Resolved]
  - Osteonecrosis of jaw [Recovered/Resolved]
  - Off label use [Unknown]
